FAERS Safety Report 5712259-9 (Version None)
Quarter: 2008Q2

REPORT INFORMATION
  Report Type: 
  Country: None (occurrence: None)
  Receive Date: 20080417
  Receipt Date: 20080409
  Transmission Date: 20081010
  Serious: Yes (Hospitalization)
  Sender: FDA-Public Use
  Company Number: 2008-02364

PATIENT
  Age: 80 Year
  Sex: Female

DRUGS (1)
  1. NICOTINE POLACRILEX [Suspect]
     Indication: SMOKING CESSATION THERAPY
     Dosage: 3-5 PIECES QD (SOMETIMES 7/DAY), BUCCAL
     Route: 002
     Dates: start: 20080201, end: 20080319

REACTIONS (5)
  - DIZZINESS [None]
  - NAUSEA [None]
  - URINARY TRACT INFECTION [None]
  - VIRAL INFECTION [None]
  - VOMITING [None]
